FAERS Safety Report 9793261 (Version 1)
Quarter: 2014Q1

REPORT INFORMATION
  Report Type: Spontaneous
  Country: DK (occurrence: IE)
  Receive Date: 20140102
  Receipt Date: 20140102
  Transmission Date: 20141002
  Serious: Yes (Death)
  Sender: FDA-Public Use
  Company Number: IE-FRI-1000052610

PATIENT
  Age: 69 Year
  Sex: Female

DRUGS (21)
  1. ESCITALOPRAM [Suspect]
     Indication: DEPRESSION
     Route: 048
     Dates: end: 20131125
  2. ASPIRIN [Suspect]
     Indication: PROPHYLAXIS
     Route: 048
     Dates: start: 201210, end: 20131125
  3. PERSANTIN RETARD [Suspect]
     Indication: PROPHYLAXIS
     Route: 048
     Dates: start: 20130520, end: 20131125
  4. GAVISCON [Concomitant]
  5. LANSOPRAZOLE [Concomitant]
     Route: 048
  6. SITAGLIPTIN [Concomitant]
     Route: 048
  7. LEVETIRACETAM [Concomitant]
     Dosage: 1500 MG
  8. ALPRAZOLAM [Concomitant]
     Dosage: 1000 MCG
  9. ONDANSETRON [Concomitant]
  10. ZOPICLONE [Concomitant]
  11. CALOGEN [Concomitant]
     Dosage: 90 ML
  12. METOPROLOL TARTRATE [Concomitant]
     Dosage: 25 MG
  13. CYCLIZINE [Concomitant]
  14. LYRICA [Concomitant]
     Dosage: 25 MG
  15. PHARMATON KIDDI [Concomitant]
     Dosage: 15 ML
  16. PERINDOPRIL [Concomitant]
     Dosage: 5 MG
     Route: 048
  17. LACTULOSE [Concomitant]
     Dosage: 30 ML
  18. PARACETAMOL [Concomitant]
     Dosage: 0.5 MG
  19. RISPERIDONE [Concomitant]
     Dosage: 0.5 MG
  20. PROCAL [Concomitant]
     Dosage: 90 ML
  21. NUTRISON [Concomitant]
     Dosage: 1000 ML

REACTIONS (3)
  - Haematemesis [Fatal]
  - Haemoglobin decreased [Fatal]
  - Haematemesis [Fatal]
